FAERS Safety Report 18292228 (Version 2)
Quarter: 2020Q4

REPORT INFORMATION
  Report Type: Other
  Country: US (occurrence: US)
  Receive Date: 20200922
  Receipt Date: 20201008
  Transmission Date: 20210113
  Serious: Yes (Other)
  Sender: FDA-Public Use
  Company Number: US-ROCHE-2678894

PATIENT
  Sex: Female

DRUGS (2)
  1. ACTEMRA [Suspect]
     Active Substance: TOCILIZUMAB
  2. ACTEMRA [Suspect]
     Active Substance: TOCILIZUMAB
     Indication: RHEUMATOID ARTHRITIS
     Dosage: INJECT SUBCUTANEOUSLY EVERY 2 WEEK(S)  HAS HAD 1 DOSE OF ACTEMRA ON 9/4/20. SHE IS DUE FOR SECOND DO
     Route: 058
     Dates: start: 20200904

REACTIONS (3)
  - Pain in extremity [Unknown]
  - Cellulitis [Unknown]
  - Thrombosis [Unknown]
